FAERS Safety Report 4927460-1 (Version None)
Quarter: 2006Q1

REPORT INFORMATION
  Report Type: 
  Country: None (occurrence: None)
  Receive Date: 20060228
  Receipt Date: 20060216
  Transmission Date: 20060701
  Serious: Yes (Hospitalization)
  Sender: FDA-Public Use
  Company Number: JP-ROCHE-437301

PATIENT

DRUGS (1)
  1. TAMIFLU [Suspect]
     Indication: INFLUENZA
     Dosage: CLARIFIED AS 'ORAL FORMULATION'
     Route: 048
     Dates: start: 20050411

REACTIONS (2)
  - EXCITABILITY [None]
  - HALLUCINATION [None]
